FAERS Safety Report 4767553-5 (Version None)
Quarter: 2005Q3

REPORT INFORMATION
  Report Type: 
  Country: None (occurrence: None)
  Receive Date: 20050909
  Receipt Date: 20050827
  Transmission Date: 20060218
  Serious: Yes (Hospitalization)
  Sender: FDA-Public Use
  Company Number: 2005120558

PATIENT
  Age: 59 Year
  Sex: Male
  Weight: 83.6887 kg

DRUGS (2)
  1. ROGAINE [Suspect]
     Indication: HYPOTRICHOSIS
     Dosage: TOPICAL
     Route: 061
     Dates: start: 20050101
  2. ANTIHYPERTENSIVES (ANTIHYPERTENSIVES) [Concomitant]

REACTIONS (3)
  - BLOOD PRESSURE INCREASED [None]
  - CEREBROVASCULAR ACCIDENT [None]
  - DIABETES MELLITUS [None]
